FAERS Safety Report 22066374 (Version 1)
Quarter: 2023Q1

REPORT INFORMATION
  Report Type: Spontaneous
  Country: CA (occurrence: CA)
  Receive Date: 20230306
  Receipt Date: 20230306
  Transmission Date: 20230418
  Serious: Yes (Other)
  Sender: FDA-Public Use
  Company Number: CA-TEVA-2023-CA-2862324

PATIENT
  Age: 73 Year
  Sex: Female

DRUGS (7)
  1. PREDNISONE [Suspect]
     Active Substance: PREDNISONE
     Indication: Drug eruption
     Route: 065
  2. BETAMETHASONE VALERATE [Suspect]
     Active Substance: BETAMETHASONE VALERATE
     Indication: Drug eruption
     Route: 065
  3. DUPILUMAB [Suspect]
     Active Substance: DUPILUMAB
     Indication: Dermatitis atopic
     Route: 058
  4. DUPILUMAB [Suspect]
     Active Substance: DUPILUMAB
     Route: 058
  5. TACROLIMUS [Suspect]
     Active Substance: TACROLIMUS
     Indication: Drug eruption
     Route: 065
  6. ACITRETIN [Suspect]
     Active Substance: ACITRETIN
     Indication: Drug eruption
     Route: 065
  7. ALITRETINOIN [Concomitant]
     Active Substance: ALITRETINOIN
     Indication: Drug eruption
     Route: 065

REACTIONS (2)
  - Drug eruption [Recovered/Resolved]
  - Drug ineffective [Unknown]
